FAERS Safety Report 4470103-4 (Version None)
Quarter: 2004Q3

REPORT INFORMATION
  Report Type: 
  Country: None (occurrence: None)
  Receive Date: 20040910
  Receipt Date: 20040730
  Transmission Date: 20050211
  Serious: No
  Sender: FDA-Public Use
  Company Number: 2004-00296

PATIENT
  Age: 74 Year
  Sex: Male
  Weight: 91.6 kg

DRUGS (9)
  1. VELCADE [Suspect]
     Indication: MULTIPLE MYELOMA
     Dosage: 2.60 MG INTRAVENOUS
     Route: 042
     Dates: start: 20040518
  2. COUMADIN [Concomitant]
  3. ZOCOR [Concomitant]
  4. DILTIAZEM [Concomitant]
  5. DOXAZOSIN [Concomitant]
  6. DIOVAN [Concomitant]
  7. DIGOXIN [Concomitant]
  8. FUROSEMIDE [Concomitant]
  9. ALLOPURINOL [Concomitant]

REACTIONS (6)
  - DIARRHOEA [None]
  - ERYTHEMA MULTIFORME [None]
  - FATIGUE [None]
  - HERPES SIMPLEX [None]
  - NAUSEA [None]
  - WHITE BLOOD CELL COUNT DECREASED [None]
